FAERS Safety Report 25609270 (Version 1)
Quarter: 2025Q3

REPORT INFORMATION
  Report Type: Spontaneous
  Country: US (occurrence: US)
  Receive Date: 20250727
  Receipt Date: 20250727
  Transmission Date: 20251020
  Serious: No
  Sender: SANOFI AVENTIS
  Company Number: US-SA-2025SA211073

PATIENT
  Sex: Female

DRUGS (13)
  1. DUPIXENT [Suspect]
     Active Substance: DUPILUMAB
     Indication: Idiopathic pulmonary fibrosis
     Dosage: 300 MG, QOW
     Route: 058
  2. ABILIFY [Concomitant]
     Active Substance: ARIPIPRAZOLE
  3. COENZYME Q10 [Concomitant]
     Active Substance: DIETARY SUPPLEMENT\UBIDECARENONE
  4. EFFEXOR [Concomitant]
     Active Substance: VENLAFAXINE HYDROCHLORIDE
  5. FLUTICASONE [Concomitant]
     Active Substance: FLUTICASONE
  6. FOLIC ACID [Concomitant]
     Active Substance: FOLIC ACID
  7. SINGULAIR [Concomitant]
     Active Substance: MONTELUKAST SODIUM
  8. TRAZODONE HCL [Concomitant]
     Active Substance: TRAZODONE HYDROCHLORIDE
  9. WIXELA INHUB [Concomitant]
     Active Substance: FLUTICASONE PROPIONATE\SALMETEROL XINAFOATE
  10. ZYRTEC [Concomitant]
     Active Substance: CETIRIZINE HYDROCHLORIDE
  11. PRAVASTATIN [Concomitant]
     Active Substance: PRAVASTATIN
  12. SPIRIVA RESPIMAT [Concomitant]
     Active Substance: TIOTROPIUM BROMIDE
  13. VITAMIN D3 [Concomitant]
     Active Substance: CHOLECALCIFEROL

REACTIONS (1)
  - Product use in unapproved indication [Unknown]
